FAERS Safety Report 17966789 (Version 1)
Quarter: 2020Q2

REPORT INFORMATION
  Report Type: Report from Study
  Country: RO (occurrence: RO)
  Receive Date: 20200630
  Receipt Date: 20200630
  Transmission Date: 20200714
  Serious: Yes (Other)
  Sender: FDA-Public Use
  Company Number: RO-AMGEN-ROUSL2020099542

PATIENT
  Age: 80 Year
  Sex: Female

DRUGS (1)
  1. PROLIA [Suspect]
     Active Substance: DENOSUMAB
     Indication: OSTEOPOROSIS
     Dosage: UNK
     Route: 065

REACTIONS (15)
  - Skin exfoliation [Unknown]
  - Contusion [Unknown]
  - Diarrhoea [Unknown]
  - Myalgia [Unknown]
  - Arthralgia [Unknown]
  - Erythema [Unknown]
  - Haemorrhage [Unknown]
  - Gait disturbance [Unknown]
  - Sensitivity to weather change [Unknown]
  - Oral herpes [Unknown]
  - Pain of skin [Unknown]
  - Skin discolouration [Unknown]
  - Vascular skin disorder [Unknown]
  - Haematoma [Unknown]
  - Hypoaesthesia [Unknown]
